FAERS Safety Report 15187665 (Version 1)
Quarter: 2018Q3

REPORT INFORMATION
  Report Type: Spontaneous
  Country: US (occurrence: US)
  Receive Date: 20180724
  Receipt Date: 20180724
  Transmission Date: 20181010
  Serious: Yes (Death, Hospitalization, Other)
  Sender: FDA-Public Use
  Company Number: US-AMGEN-USASP2018098613

PATIENT
  Age: 82 Year
  Sex: Female

DRUGS (8)
  1. METHOTREXATE. [Suspect]
     Active Substance: METHOTREXATE
     Indication: RHEUMATOID ARTHRITIS
     Dosage: 7.5 MG, QWK
     Route: 065
  2. FUROSEMIDE. [Concomitant]
     Active Substance: FUROSEMIDE
     Indication: CARDIAC FAILURE
     Dosage: UNK
  3. DIGOXIN. [Concomitant]
     Active Substance: DIGOXIN
     Indication: CARDIAC FAILURE
     Dosage: UNK
  4. FILGRASTIM [Suspect]
     Active Substance: FILGRASTIM
     Indication: NEUTROPENIA
     Dosage: 480 MUG, QD
     Route: 058
  5. REPAGLINIDE. [Concomitant]
     Active Substance: REPAGLINIDE
     Indication: TYPE 2 DIABETES MELLITUS
     Dosage: UNK
  6. LEUCOVORIN. [Concomitant]
     Active Substance: LEUCOVORIN
     Dosage: 100 MG, Q6H
     Route: 042
  7. DARBEPOETIN ALFA [Concomitant]
     Active Substance: DARBEPOETIN ALFA
     Indication: HAEMOGLOBIN DECREASED
     Dosage: 60 MUG, UNK
     Route: 058
  8. APIXABAN [Concomitant]
     Active Substance: APIXABAN
     Indication: ATRIAL FIBRILLATION
     Dosage: UNK

REACTIONS (8)
  - Thrombocytopenia [Not Recovered/Not Resolved]
  - Off label use [Unknown]
  - Septic shock [Fatal]
  - Respiratory failure [Fatal]
  - Klebsiella infection [Recovered/Resolved]
  - Lung consolidation [Unknown]
  - Anaemia [Not Recovered/Not Resolved]
  - Hypotension [Not Recovered/Not Resolved]
